FAERS Safety Report 4307916-5 (Version None)
Quarter: 2004Q1

REPORT INFORMATION
  Report Type: 
  Country: None (occurrence: None)
  Receive Date: 20040301
  Receipt Date: 20020506
  Transmission Date: 20041129
  Serious: No
  Sender: FDA-Public Use
  Company Number: US-BRISTOL-MYERS SQUIBB COMPANY-11851565

PATIENT
  Age: 55 Year
  Sex: Female
  Weight: 66 kg

DRUGS (4)
  1. GLUCOPHAGE [Suspect]
     Indication: DIABETES MELLITUS NON-INSULIN-DEPENDENT
     Dosage: DOSAGE: SOMETIMES 3 TABLETS/DAY
     Route: 048
     Dates: start: 20011217
  2. ALLEGRA [Concomitant]
  3. INSULIN [Concomitant]
  4. NOVOLIN 70/30 [Concomitant]

REACTIONS (3)
  - DIARRHOEA [None]
  - NAUSEA [None]
  - UNEXPECTED THERAPEUTIC DRUG EFFECT [None]
